FAERS Safety Report 25429418 (Version 1)
Quarter: 2025Q2

REPORT INFORMATION
  Report Type: Spontaneous
  Country: US (occurrence: US)
  Receive Date: 20250612
  Receipt Date: 20250612
  Transmission Date: 20250717
  Serious: Yes (Death)
  Sender: TAIHO ONCOLOGY INC
  Company Number: US-TAIHOP-2025-006236

PATIENT
  Age: 65 Year
  Sex: Male
  Weight: 66.68 kg

DRUGS (2)
  1. LONSURF [Suspect]
     Active Substance: TIPIRACIL HYDROCHLORIDE\TRIFLURIDINE
     Indication: Colon cancer
     Dosage: FORM STRENGTH AND CYCLE UNKNOWN
     Route: 048
  2. TYLENOL [Concomitant]
     Active Substance: ACETAMINOPHEN
     Indication: Product used for unknown indication

REACTIONS (1)
  - Death [Fatal]
